FAERS Safety Report 10899879 (Version 2)
Quarter: 2015Q1

REPORT INFORMATION
  Report Type: Report from Study
  Country: CA (occurrence: CA)
  Receive Date: 20150310
  Receipt Date: 20150311
  Transmission Date: 20150721
  Serious: Yes (Hospitalization, Other)
  Sender: FDA-Public Use
  Company Number: CA-ROCHE-1402986

PATIENT
  Age: 60 Year
  Sex: Male

DRUGS (24)
  1. ACTEMRA [Suspect]
     Active Substance: TOCILIZUMAB
     Route: 042
     Dates: start: 20140513, end: 20140513
  2. TRAZODONE [Concomitant]
     Active Substance: TRAZODONE HYDROCHLORIDE
  3. DIMENHYDRINATE. [Concomitant]
     Active Substance: DIMENHYDRINATE
  4. DEPO TESTOSTERONE [Concomitant]
     Active Substance: TESTOSTERONE
  5. DILAUDID [Concomitant]
     Active Substance: HYDROMORPHONE HYDROCHLORIDE
  6. ACTEMRA [Suspect]
     Active Substance: TOCILIZUMAB
     Route: 042
     Dates: start: 20140415
  7. BUTRANS [Suspect]
     Active Substance: BUPRENORPHINE
     Indication: PRODUCT USED FOR UNKNOWN INDICATION
     Route: 065
  8. PREDNISONE. [Suspect]
     Active Substance: PREDNISONE
     Indication: PRODUCT USED FOR UNKNOWN INDICATION
     Route: 065
  9. D-TABS [Concomitant]
     Active Substance: CHOLECALCIFEROL
  10. RITUXAN [Suspect]
     Active Substance: RITUXIMAB
     Indication: RHEUMATOID ARTHRITIS
     Dosage: DAY 1 AND DAY 15
     Route: 042
     Dates: start: 20140718, end: 20150219
  11. SYMBICORT [Concomitant]
     Active Substance: BUDESONIDE\FORMOTEROL FUMARATE DIHYDRATE
  12. AAS [Concomitant]
     Active Substance: ASPIRIN
  13. RAMIPRIL. [Concomitant]
     Active Substance: RAMIPRIL
     Route: 065
  14. PANTOLOC [Concomitant]
     Active Substance: PANTOPRAZOLE SODIUM
  15. FLUOXETINE [Concomitant]
     Active Substance: FLUOXETINE\FLUOXETINE HYDROCHLORIDE
  16. CLONAZEPAM. [Concomitant]
     Active Substance: CLONAZEPAM
  17. ACTEMRA [Suspect]
     Active Substance: TOCILIZUMAB
     Indication: RHEUMATOID ARTHRITIS
     Route: 042
     Dates: start: 20140317
  18. BISACODYL. [Concomitant]
     Active Substance: BISACODYL
  19. VITAMIN B12 [Concomitant]
     Active Substance: CYANOCOBALAMIN
  20. TERAZOSIN [Concomitant]
     Active Substance: TERAZOSIN\TERAZOSIN HYDROCHLORIDE
     Route: 065
  21. ATORVASTATIN [Concomitant]
     Active Substance: ATORVASTATIN
     Route: 065
  22. RIVOTRIL [Suspect]
     Active Substance: CLONAZEPAM
     Indication: PRODUCT USED FOR UNKNOWN INDICATION
     Route: 065
  23. SPIRIVA [Concomitant]
     Active Substance: TIOTROPIUM BROMIDE MONOHYDRATE
  24. AMLODIPINE [Concomitant]
     Active Substance: AMLODIPINE BESYLATE
     Route: 065

REACTIONS (14)
  - Blood cholesterol increased [Unknown]
  - Rheumatoid arthritis [Unknown]
  - Dyspnoea [Not Recovered/Not Resolved]
  - Hypertension [Unknown]
  - Cough [Not Recovered/Not Resolved]
  - Drug withdrawal syndrome [Unknown]
  - Confusional state [Unknown]
  - Weight fluctuation [Unknown]
  - Left ventricular hypertrophy [Unknown]
  - Drug ineffective [Unknown]
  - Nausea [Not Recovered/Not Resolved]
  - Palpitations [Not Recovered/Not Resolved]
  - Oedema [Not Recovered/Not Resolved]
  - Fluid retention [Not Recovered/Not Resolved]

NARRATIVE: CASE EVENT DATE: 201405
